FAERS Safety Report 7202096-0 (Version None)
Quarter: 2010Q4

REPORT INFORMATION
  Report Type: 
  Country: None (occurrence: None)
  Receive Date: 20101229
  Receipt Date: 20101215
  Transmission Date: 20110411
  Serious: Yes (Hospitalization)
  Sender: FDA-Public Use
  Company Number: US-CELGENEUS-163-21880-08121747

PATIENT
  Sex: Male
  Weight: 106.5 kg

DRUGS (6)
  1. REVLIMID [Suspect]
     Route: 048
     Dates: end: 20081224
  2. REVLIMID [Suspect]
     Route: 048
     Dates: start: 20090104
  3. RITUXIMAB [Suspect]
     Route: 051
     Dates: start: 20081212, end: 20081212
  4. RITUXIMAB [Suspect]
     Route: 051
     Dates: start: 20081219, end: 20081219
  5. ALLOPURINOL [Concomitant]
     Route: 048
  6. FLUCONAZOLE [Concomitant]
     Route: 048

REACTIONS (1)
  - TUMOUR LYSIS SYNDROME [None]
